FAERS Safety Report 9586885 (Version 3)
Quarter: 2013Q4

REPORT INFORMATION
  Report Type: Report from Study
  Country: BR (occurrence: BR)
  Receive Date: 20131003
  Receipt Date: 20131008
  Transmission Date: 20140711
  Serious: Yes (Other)
  Sender: FDA-Public Use
  Company Number: PHHY2013BR109358

PATIENT
  Sex: Female

DRUGS (11)
  1. DIOVAN [Suspect]
     Indication: HYPERTENSION
     Dosage: 1 DF (160 MG) DAILY
     Route: 048
  2. FORASEQ [Suspect]
     Indication: COUGH
     Dosage: 2 DF, (12 MCG FORMETEROL, 400MCG BUDESONIDE) ONLY ONCE
     Dates: start: 20130919, end: 20130919
  3. FORASEQ [Suspect]
     Indication: LUNG DISORDER
  4. FORASEQ [Suspect]
     Indication: DYSPNOEA
  5. GLIFAGE [Concomitant]
     Indication: DIABETES MELLITUS
     Dosage: 1 DF (500MG), DAILY
     Route: 048
  6. ATENOLOL [Concomitant]
     Dosage: 2 DF, DAILY
     Route: 048
  7. LEXOTAN [Concomitant]
     Indication: NERVOUSNESS
     Dosage: 0.5 DF, DAILY
     Route: 048
  8. LABIRIN [Concomitant]
     Indication: LABYRINTHITIS
     Dosage: 1 DF, DAILY
     Route: 048
  9. HYDROCHLOROTHIAZIDE [Concomitant]
     Indication: HYPERTENSION
     Dosage: 1 DF, DAILY
     Route: 048
     Dates: start: 1975
  10. ARTROLIVE [Concomitant]
     Indication: FRACTURED COCCYX
     Dosage: 1 DF, DAILY
     Route: 048
  11. CENTRUM [Concomitant]
     Dosage: 1 DF, DAILY
     Route: 048

REACTIONS (12)
  - Throat tightness [Recovered/Resolved]
  - Dysphonia [Recovered/Resolved]
  - Aphonia [Unknown]
  - Cough [Recovered/Resolved]
  - Hypersensitivity [Not Recovered/Not Resolved]
  - Erythema [Recovered/Resolved]
  - Pruritus [Recovered/Resolved]
  - Malaise [Recovered/Resolved]
  - Ear pain [Not Recovered/Not Resolved]
  - Oropharyngeal pain [Not Recovered/Not Resolved]
  - Nasopharyngitis [Not Recovered/Not Resolved]
  - Lacrimation increased [Not Recovered/Not Resolved]
